FAERS Safety Report 12358339 (Version 1)
Quarter: 2016Q2

REPORT INFORMATION
  Report Type: Spontaneous
  Country: US (occurrence: None)
  Receive Date: 20160511
  Receipt Date: 20160511
  Transmission Date: 20160815
  Serious: No
  Sender: FDA-Public Use
  Company Number: None

PATIENT
  Age: 51 Year
  Sex: Female

DRUGS (1)
  1. IMATINIB MES TAB 400MG [Suspect]
     Active Substance: IMATINIB

REACTIONS (7)
  - Pain [None]
  - Hypophagia [None]
  - Vomiting [None]
  - Diarrhoea [None]
  - Muscle spasms [None]
  - Decreased activity [None]
  - Fatigue [None]

NARRATIVE: CASE EVENT DATE: 20160507
